FAERS Safety Report 5911628-1 (Version None)
Quarter: 2008Q4

REPORT INFORMATION
  Report Type: 
  Country: None (occurrence: None)
  Receive Date: 20081003
  Receipt Date: 20080922
  Transmission Date: 20090506
  Serious: Yes (Other)
  Sender: FDA-Public Use
  Company Number: 20080922VANCO0768

PATIENT
  Age: 77 Year
  Sex: Female

DRUGS (6)
  1. VANCOMYCIN [Suspect]
     Indication: CLOSTRIDIAL INFECTION
     Dosage: 1000 MG (250 MG, 4 IN 1 D) , ORAL
     Route: 048
     Dates: end: 20080919
  2. TOPROL-XL [Concomitant]
  3. PEPCID [Concomitant]
  4. XANAX [Concomitant]
  5. NYSTATIN [Concomitant]
  6. DIOVAN [Concomitant]

REACTIONS (2)
  - ABDOMINAL PAIN [None]
  - DIARRHOEA [None]
